FAERS Safety Report 13846212 (Version 3)
Quarter: 2017Q3

REPORT INFORMATION
  Report Type: Spontaneous
  Country: CA (occurrence: CA)
  Receive Date: 20170808
  Receipt Date: 20170821
  Transmission Date: 20171127
  Serious: Yes (Other)
  Sender: FDA-Public Use
  Company Number: CA-HIKMA PHARMACEUTICALS CO. LTD-2017CA010221

PATIENT

DRUGS (8)
  1. BUSCOPAN [Concomitant]
     Active Substance: BUTYLSCOPOLAMINE BROMIDE
     Dosage: 10 MG, TID
     Route: 065
     Dates: start: 2017
  2. PENTASA [Concomitant]
     Active Substance: MESALAMINE
     Dosage: 4 MG, DAILY
     Route: 048
     Dates: start: 201611
  3. PREDNISONE. [Concomitant]
     Active Substance: PREDNISONE
     Dosage: 30 MG, UNK
  4. INFLECTRA [Suspect]
     Active Substance: INFLIXIMAB-DYYB
     Dosage: 570 MG, CYCLIC THEN EVERY 8 WEEKS
     Route: 041
     Dates: start: 20170727, end: 20170727
  5. INFLECTRA [Suspect]
     Active Substance: INFLIXIMAB-DYYB
     Dosage: 570 MG, CYCLIC THEN EVERY 8 WEEKS
     Route: 041
  6. PREDNISONE. [Concomitant]
     Active Substance: PREDNISONE
     Dosage: 35 MG, DAILY
     Route: 048
     Dates: start: 20170227
  7. INFLECTRA [Suspect]
     Active Substance: INFLIXIMAB-DYYB
     Indication: COLITIS ULCERATIVE
     Dosage: 570 MG, CYCLIC THEN EVERY 8 WEEKS
     Route: 041
     Dates: start: 20170227, end: 20170727
  8. ASPIRIN. [Concomitant]
     Active Substance: ASPIRIN
     Dosage: UNK
     Route: 065
     Dates: start: 2016

REACTIONS (6)
  - Dyspnoea [Recovering/Resolving]
  - Lip swelling [Recovering/Resolving]
  - Chest discomfort [Unknown]
  - Urticaria [Recovered/Resolved]
  - Anal incontinence [Unknown]
  - Pruritus [Unknown]

NARRATIVE: CASE EVENT DATE: 201707
